FAERS Safety Report 24396039 (Version 2)
Quarter: 2024Q4

REPORT INFORMATION
  Report Type: Spontaneous
  Country: IT (occurrence: IT)
  Receive Date: 20241004
  Receipt Date: 20241009
  Transmission Date: 20250115
  Serious: Yes (Other)
  Sender: AUROBINDO
  Company Number: IT-MLMSERVICE-20240919-PI196258-00029-2

PATIENT
  Age: 4 Decade
  Sex: Male

DRUGS (6)
  1. ASPIRIN [Suspect]
     Active Substance: ASPIRIN
     Indication: Product used for unknown indication
     Dosage: UNK
     Route: 065
  2. ACETAMINOPHEN [Suspect]
     Active Substance: ACETAMINOPHEN
     Indication: Product used for unknown indication
     Dosage: UNK
     Route: 065
  3. PAROXETINE [Suspect]
     Active Substance: PAROXETINE
     Indication: Social anxiety disorder
     Dosage: 40 MILLIGRAM, ONCE A DAY
     Route: 065
     Dates: start: 2022
  4. SERTRALINE [Suspect]
     Active Substance: SERTRALINE HYDROCHLORIDE
     Indication: Social anxiety disorder
     Dosage: 50 MILLIGRAM, DAILY (DOSE REDUCED)
     Route: 065
  5. SERTRALINE [Suspect]
     Active Substance: SERTRALINE HYDROCHLORIDE
     Dosage: 100 MILLIGRAM, DAILY
     Route: 065
  6. SERTRALINE [Suspect]
     Active Substance: SERTRALINE HYDROCHLORIDE
     Dosage: 25 MILLIGRAM, DAILY (DOSE REDUCED TO 25 MG/DAY)
     Route: 065

REACTIONS (6)
  - Suicidal ideation [Unknown]
  - Erectile dysfunction [Recovering/Resolving]
  - Drug hypersensitivity [Unknown]
  - Weight increased [Unknown]
  - Sexual dysfunction [Recovering/Resolving]
  - Drug ineffective [Unknown]
